FAERS Safety Report 8580574-X (Version None)
Quarter: 2012Q3

REPORT INFORMATION
  Report Type: 
  Country: None (occurrence: None)
  Receive Date: 20120808
  Receipt Date: 20120516
  Transmission Date: 20120928
  Serious: Yes (Other)
  Sender: FDA-Public Use
  Company Number: PHHY2012BR067948

PATIENT
  Age: 33 Year
  Sex: Female

DRUGS (3)
  1. PROGRAF [Concomitant]
  2. MYFORTIC [Suspect]
  3. PREDNISONE TAB [Concomitant]

REACTIONS (1)
  - DEPRESSION [None]
